FAERS Safety Report 25365997 (Version 1)
Quarter: 2025Q2

REPORT INFORMATION
  Report Type: Spontaneous
  Country: US (occurrence: US)
  Receive Date: 20250528
  Receipt Date: 20250528
  Transmission Date: 20250716
  Serious: Yes (Other)
  Sender: NOVO NORDISK
  Company Number: US-NOVOPROD-1437182

PATIENT
  Age: 78 Year
  Sex: Female

DRUGS (2)
  1. TRESIBA [Suspect]
     Active Substance: INSULIN DEGLUDEC
     Indication: Diabetes mellitus
     Dosage: 38 IU, QD
     Route: 058
  2. OZEMPIC [Suspect]
     Active Substance: SEMAGLUTIDE
     Indication: Diabetes mellitus
     Dosage: 1MG ONCE WEEKLY
     Route: 058

REACTIONS (5)
  - Cataract operation [Recovered/Resolved]
  - Cataract operation [Not Recovered/Not Resolved]
  - Nasopharyngitis [Recovered/Resolved]
  - Memory impairment [Unknown]
  - Astigmatism [Unknown]

NARRATIVE: CASE EVENT DATE: 20250129
